FAERS Safety Report 8697087 (Version 3)
Quarter: 2015Q2

REPORT INFORMATION
  Report Type: Spontaneous
  Country: JP (occurrence: JP)
  Receive Date: 20120801
  Receipt Date: 20150406
  Transmission Date: 20150821
  Serious: Yes (Hospitalization, Disabling, Other)
  Sender: FDA-Public Use
  Company Number: JP-009507513-1207JPN011128

PATIENT
  Age: 93 Year
  Sex: Female

DRUGS (4)
  1. FOSAMAX [Suspect]
     Active Substance: ALENDRONATE SODIUM
     Indication: OSTEOPOROSIS
     Dosage: 35 MG, QW
     Route: 048
     Dates: start: 20061028, end: 20111016
  2. GASTROM [Concomitant]
     Active Substance: ECABET
     Indication: PROPHYLAXIS AGAINST GASTROINTESTINAL ULCER
     Dosage: 1 G, TID
     Route: 048
     Dates: start: 20060620
  3. MESITAT [Concomitant]
     Indication: PANCREATITIS
     Dosage: 200 MG, TID
     Route: 048
     Dates: start: 20060620
  4. LANSORAL [Concomitant]
     Indication: ABDOMINAL DISCOMFORT
     Dosage: 15 MG, QD
     Route: 048
     Dates: start: 20071112

REACTIONS (2)
  - Osteonecrosis of jaw [Not Recovered/Not Resolved]
  - Osteomyelitis [Not Recovered/Not Resolved]

NARRATIVE: CASE EVENT DATE: 20110819
